FAERS Safety Report 18145793 (Version 1)
Quarter: 2020Q3

REPORT INFORMATION
  Report Type: Spontaneous
  Country: AU (occurrence: AU)
  Receive Date: 20200813
  Receipt Date: 20200813
  Transmission Date: 20201103
  Serious: Yes (Hospitalization)
  Sender: FDA-Public Use
  Company Number: AU-MYLANLABS-2020M1070693

PATIENT
  Age: 67 Year
  Sex: Male

DRUGS (11)
  1. ASPIRIN                            /00002701/ [Concomitant]
     Active Substance: ASPIRIN
     Indication: ACUTE MYOCARDIAL INFARCTION
     Dosage: UNK
     Route: 065
  2. DEXTROSE. [Suspect]
     Active Substance: DEXTROSE
     Indication: HYPERINSULINAEMIC HYPOGLYCAEMIA
  3. PERINDOPRIL [Concomitant]
     Active Substance: PERINDOPRIL
     Indication: PRODUCT USED FOR UNKNOWN INDICATION
     Dosage: UNK
     Route: 065
  4. CLOPIDOGREL [Suspect]
     Active Substance: CLOPIDOGREL BISULFATE
     Indication: ACUTE MYOCARDIAL INFARCTION
     Dosage: UNK
     Route: 065
     Dates: end: 201802
  5. DEXAMETHASONE. [Suspect]
     Active Substance: DEXAMETHASONE
     Indication: HYPERINSULINAEMIC HYPOGLYCAEMIA
  6. DIAZOXIDE [Suspect]
     Active Substance: DIAZOXIDE
     Indication: INSULIN AUTOIMMUNE SYNDROME
     Dosage: UNK
     Route: 065
  7. NICORANDIL [Concomitant]
     Active Substance: NICORANDIL
     Indication: PRODUCT USED FOR UNKNOWN INDICATION
     Route: 065
  8. DIAZOXIDE [Suspect]
     Active Substance: DIAZOXIDE
     Indication: HYPERINSULINAEMIC HYPOGLYCAEMIA
  9. ATORVASTATIN [Concomitant]
     Active Substance: ATORVASTATIN
     Indication: PRODUCT USED FOR UNKNOWN INDICATION
     Dosage: UNK
     Route: 065
  10. DEXAMETHASONE. [Suspect]
     Active Substance: DEXAMETHASONE
     Indication: INSULIN AUTOIMMUNE SYNDROME
     Dosage: UNK
     Route: 048
  11. DEXTROSE. [Suspect]
     Active Substance: DEXTROSE
     Indication: INSULIN AUTOIMMUNE SYNDROME
     Dosage: 100 MILLILITER, QH
     Dates: end: 201803

REACTIONS (3)
  - Insulin autoimmune syndrome [Recovering/Resolving]
  - Hyperinsulinaemic hypoglycaemia [Recovered/Resolved]
  - Drug ineffective [Unknown]
